FAERS Safety Report 7466325-0 (Version None)
Quarter: 2011Q2

REPORT INFORMATION
  Report Type: 
  Country: None (occurrence: None)
  Receive Date: 20110509
  Receipt Date: 20100730
  Transmission Date: 20111010
  Serious: No
  Sender: FDA-Public Use
  Company Number: US-ALEXION-A201000912

PATIENT
  Sex: Female

DRUGS (3)
  1. SOLIRIS [Suspect]
     Indication: PAROXYSMAL NOCTURNAL HAEMOGLOBINURIA
     Dosage: UNK
     Route: 042
     Dates: start: 20100601
  2. BENADRYL [Concomitant]
     Indication: PREMEDICATION
     Route: 042
  3. PALONOSETRON [Concomitant]
     Indication: PREMEDICATION
     Dosage: UNK
     Route: 042

REACTIONS (4)
  - SWELLING FACE [None]
  - ABDOMINAL DISTENSION [None]
  - FATIGUE [None]
  - HAEMOLYSIS [None]
